FAERS Safety Report 8912995 (Version 1)
Quarter: 2012Q4

REPORT INFORMATION
  Report Type: Spontaneous
  Country: US (occurrence: None)
  Receive Date: 20121114
  Receipt Date: 20121114
  Transmission Date: 20130627
  Serious: No
  Sender: FDA-Public Use
  Company Number: None

PATIENT
  Sex: Male
  Weight: 106.6 kg

DRUGS (1)
  1. CETUXIMAB [Suspect]

REACTIONS (8)
  - Infusion related reaction [None]
  - Flushing [None]
  - Dyspnoea [None]
  - Chest pain [None]
  - Chest discomfort [None]
  - Nausea [None]
  - Heart rate decreased [None]
  - Oxygen saturation decreased [None]
